FAERS Safety Report 8976472 (Version 1)
Quarter: 2012Q4

REPORT INFORMATION
  Report Type: 
  Country: IT (occurrence: ES)
  Receive Date: 20121220
  Receipt Date: 20121220
  Transmission Date: 20130627
  Serious: Yes (Other)
  Sender: FDA-Public Use
  Company Number: ES-FRI-1000041135

PATIENT
  Age: 68 Year
  Sex: Female

DRUGS (1)
  1. FOSFOMYCIN [Suspect]
     Indication: URINARY TRACT INFECTION
     Dosage: 3 G
     Route: 048
     Dates: start: 20120611, end: 20120611

REACTIONS (1)
  - Fixed eruption [Unknown]
